FAERS Safety Report 15850963 (Version 4)
Quarter: 2019Q1

REPORT INFORMATION
  Report Type: Spontaneous
  Country: PT (occurrence: PT)
  Receive Date: 20190122
  Receipt Date: 20190215
  Transmission Date: 20190417
  Serious: Yes (Life-Threatening, Hospitalization, Other)
  Sender: FDA-Public Use
  Company Number: PT-AUROBINDO-AUR-APL-2019-002538

PATIENT

DRUGS (5)
  1. AMOXICILLIN. [Suspect]
     Active Substance: AMOXICILLIN
     Indication: PRODUCT USED FOR UNKNOWN INDICATION
     Dosage: UNK
     Route: 065
  2. HYDROCHLOROTHIAZIDE. [Suspect]
     Active Substance: HYDROCHLOROTHIAZIDE
     Indication: HYPERTENSION
     Dosage: UNK
     Route: 065
  3. VALSARTAN. [Concomitant]
     Active Substance: VALSARTAN
     Indication: HYPERTENSION
     Dosage: 80 MILLIGRAM
     Route: 065
  4. CLARITHROMYCIN. [Suspect]
     Active Substance: CLARITHROMYCIN
     Indication: PRODUCT USED FOR UNKNOWN INDICATION
     Dosage: UNK
     Route: 065
  5. VALSARTAN+HYDROCHLOROTHIAZIDE 80/12.5MG [Suspect]
     Active Substance: HYDROCHLOROTHIAZIDE\VALSARTAN
     Indication: HYPERTENSION
     Dosage: UNK, VALSARTAN HYDROCHLOROTHIAZIDE 12.5 MG
     Route: 065

REACTIONS (18)
  - Non-cardiogenic pulmonary oedema [Recovered/Resolved]
  - Nausea [Recovered/Resolved]
  - Pulmonary oedema [Recovered/Resolved]
  - Flushing [Recovered/Resolved]
  - Vomiting [Unknown]
  - Rales [Recovering/Resolving]
  - Thrombocytopenia [Unknown]
  - Tachypnoea [Recovering/Resolving]
  - Oxygen saturation decreased [Recovering/Resolving]
  - Leukopenia [Unknown]
  - Bradycardia [Unknown]
  - Dyspnoea [Recovered/Resolved]
  - Respiratory failure [Recovering/Resolving]
  - Anaphylactic reaction [Recovered/Resolved]
  - Hypotension [Unknown]
  - Tryptase increased [Unknown]
  - Hyperlactacidaemia [Unknown]
  - Acute kidney injury [Unknown]
